FAERS Safety Report 8976320 (Version 1)
Quarter: 2012Q4

REPORT INFORMATION
  Report Type: 
  Country: US (occurrence: US)
  Receive Date: 20121220
  Receipt Date: 20121220
  Transmission Date: 20130627
  Serious: No
  Sender: FDA-Public Use
  Company Number: US-009507513-1212USA007774

PATIENT
  Sex: Female

DRUGS (1)
  1. NUVARING [Suspect]
     Dosage: 1 DF, every 28 days
     Route: 067
     Dates: start: 2010

REACTIONS (4)
  - Device expulsion [Unknown]
  - Drug dose omission [Unknown]
  - Product quality issue [Unknown]
  - Device breakage [Unknown]
